FAERS Safety Report 4596862-8 (Version None)
Quarter: 2005Q1

REPORT INFORMATION
  Report Type: 
  Country: None (occurrence: None)
  Receive Date: 20050228
  Receipt Date: 20050215
  Transmission Date: 20050727
  Serious: Yes (Other)
  Sender: FDA-Public Use
  Company Number: 2005017648

PATIENT
  Age: 70 Year
  Sex: Female
  Weight: 90 kg

DRUGS (3)
  1. ZITHROMAX [Suspect]
     Indication: BRONCHITIS ACUTE
     Dosage: 500 MG (250 MG, 2 IN 1 D), ORAL
     Route: 048
     Dates: start: 20050112, end: 20050116
  2. SINUSITIS N ^HEVERT^ (HOMEOPATICS NOS) [Concomitant]
  3. BRONCHICUM ELIXIR PLUS (PLANTAGO LANCEOLATA, PRIMULA FLUID EXTRACT, TH [Concomitant]

REACTIONS (1)
  - TENDONITIS [None]
